FAERS Safety Report 13646478 (Version 5)
Quarter: 2017Q3

REPORT INFORMATION
  Report Type: Spontaneous
  Country: US (occurrence: US)
  Receive Date: 20170613
  Receipt Date: 20170905
  Transmission Date: 20171127
  Serious: No
  Sender: FDA-Public Use
  Company Number: US-PFIZER INC-2016438754

PATIENT
  Age: 78 Year
  Sex: Male
  Weight: 85.73 kg

DRUGS (48)
  1. LYRICA [Suspect]
     Active Substance: PREGABALIN
     Dosage: 200 MG, 2X/DAY
  2. LYRICA [Suspect]
     Active Substance: PREGABALIN
     Dosage: UNK
  3. VIAGRA [Concomitant]
     Active Substance: SILDENAFIL CITRATE
     Dosage: 100 MG, UNK (ONE BY MOUTH 30 MINUTES PRIOR TO INTERCOURSE)
     Route: 048
  4. ALLOPURINOL. [Concomitant]
     Active Substance: ALLOPURINOL
     Dosage: 200 MG, DAILY
     Route: 048
  5. PAXIL [Concomitant]
     Active Substance: PAROXETINE HYDROCHLORIDE
     Dosage: 20 MG, 1X/DAY (EVERY EVENING)
     Route: 048
  6. NORVASC [Concomitant]
     Active Substance: AMLODIPINE BESYLATE
     Dosage: 10 MG, 1X/DAY (HOLD FOR NOW)
     Route: 048
  7. ASPIRIN ENTERIC COATED [Concomitant]
     Active Substance: ASPIRIN
     Dosage: 162 MG, 1X/DAY (81 MG; 2 BY MOUTH EVERYDAY)
  8. UNISOM PM PAIN [Concomitant]
     Indication: PAIN
     Dosage: 50 MG, 1X/DAY (@ BEDTIME)
  9. OXYCODONE HYDROCHLORIDE. [Concomitant]
     Active Substance: OXYCODONE HYDROCHLORIDE
     Indication: PAIN
     Dosage: ONE TO TWO TABLETS EVERY 12 HOURS AS NEEDED
  10. ALBUTEROL SULFATE. [Concomitant]
     Active Substance: ALBUTEROL SULFATE
     Dosage: 2 DF, EVERY 4 HRS
     Route: 055
  11. TIZANIDINE HCL [Concomitant]
     Active Substance: TIZANIDINE HYDROCHLORIDE
     Dosage: 2 MG, 3X/DAY
     Route: 048
     Dates: start: 20161003
  12. LYRICA [Suspect]
     Active Substance: PREGABALIN
     Dosage: 200 MG, UNK
     Dates: start: 201706
  13. LYRICA [Suspect]
     Active Substance: PREGABALIN
     Dosage: 200 MG, UNK
  14. LYRICA [Suspect]
     Active Substance: PREGABALIN
     Dosage: 300 MG, UNK
  15. MAGNESIUM [Concomitant]
     Active Substance: MAGNESIUM
     Indication: BLOOD MAGNESIUM DECREASED
     Dosage: 800 MG, 1X/DAY (400 MG; 2 BY MOUTH EVERYDAY)
     Route: 048
  16. AMITRIPTYLINE HCL [Concomitant]
     Active Substance: AMITRIPTYLINE
     Dosage: 50 MG, DAILY (AT BEDTIME)
     Route: 048
  17. PAXIL [Concomitant]
     Active Substance: PAROXETINE HYDROCHLORIDE
     Dosage: 40 MG, 1X/DAY (EVERY MORNING)
     Route: 048
  18. STOOL SOFTENER (DOCUSATE) [Concomitant]
     Active Substance: DOCUSATE
     Dosage: 100 MG, 1X/DAY
  19. LYRICA [Suspect]
     Active Substance: PREGABALIN
     Indication: FIBROMYALGIA
     Dosage: 200 MG, 3X/DAY (EVERY 8 HOURS)
     Route: 048
  20. TYLENOL [Concomitant]
     Active Substance: ACETAMINOPHEN
     Dosage: 325 MG, AS NEEDED
  21. ZYRTEC [Concomitant]
     Active Substance: CETIRIZINE HYDROCHLORIDE
     Dosage: 10 MG, DAILY
  22. FENTANYL. [Concomitant]
     Active Substance: FENTANYL
     Dosage: 50 UG, (APPLY PATCH EVERY 72 HOURS; REMEMBER TO REMOVE OLD PATCH)
  23. PROVENTIL HFA [Concomitant]
     Active Substance: ALBUTEROL SULFATE
     Dosage: (2 PUFF EVERY 4 HOURS) AS NEEDED
  24. PAROXETINE. [Concomitant]
     Active Substance: PAROXETINE
     Dosage: 20 MG, 1X/DAY(PM)
  25. PROAIR HFA [Concomitant]
     Active Substance: ALBUTEROL SULFATE
     Indication: WHEEZING
     Dosage: (90 BA 2 PUFFS EVERY 4-6 HOURS AS NEEDED)
     Dates: start: 20161116
  26. LYRICA [Suspect]
     Active Substance: PREGABALIN
     Dosage: 300 MG, UNK
  27. TEMAZEPAM. [Concomitant]
     Active Substance: TEMAZEPAM
     Dosage: 15 MG, 1X/DAY (30 MINUTES PRIOR TO BEDTIME)
     Route: 048
  28. FENTANYL. [Concomitant]
     Active Substance: FENTANYL
     Dosage: 50 MG, (APPLY PATCH EVERY 72 HOURS)
  29. LISINOPRIL. [Concomitant]
     Active Substance: LISINOPRIL
     Dosage: 40 MG, 1X/DAY
     Route: 048
  30. ASPERCREME NOS [Concomitant]
     Active Substance: MENTHOL\TROLAMINE SALICYLATE
     Dosage: AS NEEDED ((ON LEGS/FEET))
     Route: 061
  31. CYCLOBENZAPRINE HCL [Concomitant]
     Active Substance: CYCLOBENZAPRINE HYDROCHLORIDE
     Dosage: 1/2 TO 1 EVERY 8 HOURS, AS NEEDED
     Route: 048
  32. MAGNESIUM [Concomitant]
     Active Substance: MAGNESIUM
     Dosage: 250 MG, DAILY
  33. ZANTAC [Concomitant]
     Active Substance: RANITIDINE HYDROCHLORIDE
     Dosage: 150 MG, 2X/DAY (IN THE MORNING AND EVERY NIGHT AT BEDTIME)
     Route: 048
  34. METFORMIN HCL [Concomitant]
     Active Substance: METFORMIN HYDROCHLORIDE
     Indication: DIABETES MELLITUS
     Dosage: 500 MG, 2X/DAY
     Route: 048
  35. XANAX [Concomitant]
     Active Substance: ALPRAZOLAM
     Dosage: 1/2-1 TAB BY MOUTH BID- NO MORE THAN TWO A DAY
     Route: 048
  36. NEXIUM [Concomitant]
     Active Substance: ESOMEPRAZOLE MAGNESIUM
     Indication: ABDOMINAL DISCOMFORT
     Dosage: 40 MG, 1X/DAY (IN THE MORNING) (AM)
     Route: 048
  37. PAROXETINE. [Concomitant]
     Active Substance: PAROXETINE
     Dosage: 40 MG, 1X/DAY (@DAY (AM)
  38. ALLOPURINOL. [Concomitant]
     Active Substance: ALLOPURINOL
     Dosage: 100 MG, 1X/DAY (EVERYDAY, MAY NEED TO INCREASE TO 2 DAILY AFTER 3 DAYS)
     Route: 048
  39. LIDODERM [Concomitant]
     Active Substance: LIDOCAINE
     Dosage: 5 %, 1 PATCH TO AFFECTED AREA EVERYDAY, 12 HOURS ON AND 12 HOURS OFF AS NEEDED
  40. ALPRAZOLAM. [Concomitant]
     Active Substance: ALPRAZOLAM
     Dosage: 0.5 MG, 2X/DAY
  41. AMLODIPINE [Concomitant]
     Active Substance: AMLODIPINE BESYLATE
     Dosage: 10 MG, DAILY
  42. STOOL SOFTENER (DOCUSATE) [Concomitant]
     Active Substance: DOCUSATE
     Dosage: 200 MG, 1X/DAY
  43. LYRICA [Suspect]
     Active Substance: PREGABALIN
     Dosage: 300 MG, 3X/DAY(EVERY 8 HOURS)
     Route: 048
     Dates: start: 201705
  44. TAMSULOSIN HCL [Concomitant]
     Active Substance: TAMSULOSIN
     Dosage: 0.8 MG, 1X/DAY (0.4 MG; 2 BY MOUTH EVERYDAY)
     Route: 048
  45. TOPROL XL [Concomitant]
     Active Substance: METOPROLOL SUCCINATE
     Dosage: 50 MG, 1X/DAY (EVERYDAY)
     Route: 048
  46. FLONASE [Concomitant]
     Active Substance: FLUTICASONE PROPIONATE
     Dosage: 2 SPRAY EACH NOSTRIL EVERYDAY
     Route: 045
  47. VITAMIN C [Concomitant]
     Active Substance: ASCORBIC ACID
     Dosage: 1000 MG, 1X/DAY (EVERYDAY)
     Route: 048
  48. METOPROLOL. [Concomitant]
     Active Substance: METOPROLOL
     Dosage: 50 MG, DAILY

REACTIONS (6)
  - Intentional dose omission [Unknown]
  - Hyperhidrosis [Recovered/Resolved]
  - Pain [Unknown]
  - Feeling abnormal [Recovered/Resolved]
  - Prescribed overdose [Unknown]
  - Malaise [Unknown]

NARRATIVE: CASE EVENT DATE: 201705
